FAERS Safety Report 9005576 (Version 2)
Quarter: 2013Q1

REPORT INFORMATION
  Report Type: Spontaneous
  Country: DE (occurrence: DE)
  Receive Date: 20130109
  Receipt Date: 20130116
  Transmission Date: 20140127
  Serious: Yes (Hospitalization)
  Sender: FDA-Public Use
  Company Number: DE-PFIZER INC-2013007090

PATIENT
  Age: 49 Year
  Sex: Male

DRUGS (4)
  1. PANTOZOL [Suspect]
     Dosage: 40 MG, SINGLE
     Route: 048
     Dates: start: 20121229, end: 20121229
  2. PROMETHAZINE [Suspect]
     Dosage: 200 MG INGESTED ONCE
     Route: 048
     Dates: start: 20121229, end: 20121229
  3. TRAMADOL [Suspect]
     Dosage: 1000 MG INGESTED ONCE
     Route: 048
     Dates: start: 20121229, end: 20121229
  4. METAMIZOLE [Concomitant]
     Dosage: 500 MG, 8 TABLETS

REACTIONS (5)
  - Tachycardia [Recovered/Resolved]
  - Hypertension [Recovered/Resolved]
  - Intentional drug misuse [Recovered/Resolved]
  - Somnolence [Recovered/Resolved]
  - Suicide attempt [Unknown]
